FAERS Safety Report 8356110-X (Version None)
Quarter: 2012Q2

REPORT INFORMATION
  Report Type: 
  Country: None (occurrence: None)
  Receive Date: 20120510
  Receipt Date: 20120427
  Transmission Date: 20120825
  Serious: Yes (Hospitalization)
  Sender: FDA-Public Use
  Company Number: GGEL20120400454

PATIENT
  Age: 38 Year
  Sex: Female

DRUGS (3)
  1. OXCARBAZEPINE [Suspect]
     Indication: DEPRESSION
     Dosage: 450 MILLIGRAM, ORAL
     Route: 048
     Dates: start: 20120312
  2. CLONAZEPAM (CLONAZAPEM) [Concomitant]
  3. ZOLPIDEM TARTRATE (ZOLPIDEM )-(TABLETS) (ZOLPIDEM) [Concomitant]

REACTIONS (5)
  - VOMITING [None]
  - FALL [None]
  - GASTROINTESTINAL DISORDER [None]
  - WHITE BLOOD CELL COUNT DECREASED [None]
  - PAIN [None]
